FAERS Safety Report 18707789 (Version 2)
Quarter: 2021Q4

REPORT INFORMATION
  Report Type: Spontaneous
  Country: CA (occurrence: CA)
  Receive Date: 20210106
  Receipt Date: 20211106
  Transmission Date: 20220303
  Serious: Yes (Hospitalization, Other)
  Sender: FDA-Public Use
  Company Number: CA-SA-2020SA376664

PATIENT
  Age: 65 Year
  Sex: Female

DRUGS (4)
  1. TOUJEO [Suspect]
     Active Substance: INSULIN GLARGINE
     Dosage: 30 IU
     Route: 058
     Dates: start: 20200122
  2. APIDRA [Suspect]
     Active Substance: INSULIN GLULISINE
     Indication: Diabetes mellitus
     Dosage: 17 IU
     Route: 058
     Dates: start: 20200122
  3. APIDRA [Suspect]
     Active Substance: INSULIN GLULISINE
     Dosage: UNK
     Dates: start: 20200504
  4. OZEMPIC [Suspect]
     Active Substance: SEMAGLUTIDE
     Indication: Diabetes mellitus
     Dosage: 0.5 MG, QW
     Route: 058
     Dates: start: 20200309

REACTIONS (2)
  - Bell^s palsy [Recovering/Resolving]
  - Transient ischaemic attack [Recovering/Resolving]

NARRATIVE: CASE EVENT DATE: 20200426
